FAERS Safety Report 15338621 (Version 1)
Quarter: 2018Q3

REPORT INFORMATION
  Report Type: Spontaneous
  Country: US (occurrence: US)
  Receive Date: 20180831
  Receipt Date: 20180831
  Transmission Date: 20181010
  Serious: No
  Sender: FDA-Public Use
  Company Number: US-INTERCEPT-PMOCA2018001063

PATIENT

DRUGS (16)
  1. VITAMIN D [Concomitant]
     Active Substance: CHOLECALCIFEROL
  2. DULOXETINE. [Concomitant]
     Active Substance: DULOXETINE
  3. ALEVE [Concomitant]
     Active Substance: NAPROXEN SODIUM
  4. SYNTHROID [Concomitant]
     Active Substance: LEVOTHYROXINE SODIUM
  5. TRAZODONE [Concomitant]
     Active Substance: TRAZODONE HYDROCHLORIDE
  6. OTEZLA [Concomitant]
     Active Substance: APREMILAST
  7. SINGULAIR [Concomitant]
     Active Substance: MONTELUKAST SODIUM
  8. CITALOPRAM [Concomitant]
     Active Substance: CITALOPRAM HYDROBROMIDE
  9. LORATADINE. [Concomitant]
     Active Substance: LORATADINE
  10. CYCLOBENZAPRINE. [Concomitant]
     Active Substance: CYCLOBENZAPRINE
  11. DICLOFENAC [Concomitant]
     Active Substance: DICLOFENAC
  12. ASPIRIN 81 [Concomitant]
     Active Substance: ASPIRIN
  13. PRENATAL VITAMINS [Concomitant]
     Active Substance: VITAMINS
  14. METOPROLOL SUCCINATE. [Concomitant]
     Active Substance: METOPROLOL SUCCINATE
  15. OCALIVA [Suspect]
     Active Substance: OBETICHOLIC ACID
     Indication: HEPATITIS C
     Dosage: 5 MG, QD
     Route: 048
  16. AMITRIPTYLINE [Concomitant]
     Active Substance: AMITRIPTYLINE

REACTIONS (2)
  - Product use in unapproved indication [None]
  - Pruritus [Unknown]
